FAERS Safety Report 13262619 (Version 11)
Quarter: 2019Q1

REPORT INFORMATION
  Report Type: Report from Study
  Country: JP (occurrence: JP)
  Receive Date: 20170223
  Receipt Date: 20190330
  Transmission Date: 20190417
  Serious: Yes (Hospitalization)
  Sender: FDA-Public Use
  Company Number: JP-ROCHE-1895293

PATIENT
  Age: 79 Year
  Sex: Male
  Weight: 61.1 kg

DRUGS (17)
  1. KETOPROFEN. [Concomitant]
     Active Substance: KETOPROFEN
     Indication: ARTHRALGIA
     Dosage: 1 OTHER
     Route: 062
     Dates: start: 2007
  2. OSELTAMIVIR [Concomitant]
     Active Substance: OSELTAMIVIR
     Indication: INFLUENZA
     Route: 048
     Dates: start: 20170204, end: 20170210
  3. TOCOPHEROL NICOTINATE [Concomitant]
     Active Substance: TOCOPHERYL NICOTINATE, D-.ALPHA.
     Indication: HYPERTENSION
     Route: 048
     Dates: start: 201303
  4. HUSCODE [Concomitant]
     Active Substance: CHLORPHENIRAMINE MALEATE\DIHYDROCODEINE PHOSPHATE\METHYLEPHEDRINE HYDROCHLORIDE, DL-
     Indication: COUGH
     Route: 048
     Dates: start: 20170210, end: 20170215
  5. AMBROXOL HYDROCHLORIDE [Concomitant]
     Active Substance: AMBROXOL HYDROCHLORIDE
     Indication: COUGH
     Route: 048
     Dates: start: 20170210, end: 20170215
  6. METFORMIN HYDROCHLORIDE. [Concomitant]
     Active Substance: METFORMIN HYDROCHLORIDE
     Indication: DIABETES MELLITUS
     Route: 048
     Dates: start: 201303
  7. MECOBALAMIN [Concomitant]
     Active Substance: METHYLCOBALAMIN
     Indication: DIABETIC NEUROPATHY
     Route: 048
     Dates: start: 2014
  8. AMLODIPINE [Concomitant]
     Active Substance: AMLODIPINE BESYLATE
     Indication: HYPERTENSION
     Route: 048
     Dates: start: 201303
  9. ALOGLIPTIN BENZOATE [Concomitant]
     Active Substance: ALOGLIPTIN BENZOATE
     Indication: HYPERURICAEMIA
     Route: 048
     Dates: start: 201303
  10. BISACODYL. [Concomitant]
     Active Substance: BISACODYL
     Indication: CONSTIPATION
     Route: 048
     Dates: start: 20170214, end: 20170214
  11. SENNOSIDE A+B [Concomitant]
     Active Substance: SENNOSIDES A AND B
     Indication: CONSTIPATION
     Dosage: SENNOSIDES A-B CALCIUM
     Route: 048
     Dates: start: 20170217
  12. ATEZOLIZUMAB. [Suspect]
     Active Substance: ATEZOLIZUMAB
     Indication: TRANSITIONAL CELL CARCINOMA
     Dosage: THE MOST RECENT DOSE OF ATEZOLIZUMAB 1200 MG WAS ON 30/JAN/2017 AT 11:01
     Route: 042
     Dates: start: 20170130
  13. FEBUXOSTAT. [Concomitant]
     Active Substance: FEBUXOSTAT
     Indication: HYPERURICAEMIA
     Route: 048
     Dates: start: 201303
  14. EPALRESTAT [Concomitant]
     Active Substance: EPALRESTAT
     Indication: DIABETIC NEUROPATHY
     Route: 048
     Dates: start: 2014
  15. MAGNESIUM OXIDE. [Concomitant]
     Active Substance: MAGNESIUM OXIDE
     Indication: CONSTIPATION
     Route: 048
     Dates: start: 201611
  16. GARENOXACIN MESILATE [Concomitant]
     Active Substance: GARENOXACIN MESYLATE
     Indication: COUGH
     Route: 048
     Dates: start: 20170210, end: 20170215
  17. HUMULIN R [Concomitant]
     Active Substance: INSULIN HUMAN
     Indication: DIABETES MELLITUS
     Route: 058
     Dates: start: 20170217, end: 20170218

REACTIONS (2)
  - Arthritis [Recovered/Resolved]
  - Acute kidney injury [Recovered/Resolved]

NARRATIVE: CASE EVENT DATE: 20170211
